FAERS Safety Report 6436910-3 (Version None)
Quarter: 2009Q4

REPORT INFORMATION
  Report Type: 
  Country: None (occurrence: None)
  Receive Date: 20091109
  Receipt Date: 20091030
  Transmission Date: 20100525
  Serious: Yes (Hospitalization)
  Sender: FDA-Public Use
  Company Number: 422195

PATIENT
  Age: 53 Year
  Sex: Female
  Weight: 65 kg

DRUGS (9)
  1. METHOTREXATE [Suspect]
     Dosage: 25 MG, 1 WEEK
  2. REMICADE [Suspect]
     Indication: RHEUMATOID ARTHRITIS
     Dosage: 200 MG, INTRAVENOUS
     Route: 042
     Dates: start: 20060717
  3. (BECOTIDE) [Concomitant]
  4. (CO-DYDRAMOL) [Concomitant]
  5. (DICLOFENAC) [Concomitant]
  6. FOLIC ACID [Concomitant]
  7. (HORMONES NOS) [Concomitant]
  8. LEVOTHYROXINE SODIUM [Concomitant]
  9. VENTOLIN [Concomitant]

REACTIONS (1)
  - CELLULITIS [None]
